FAERS Safety Report 5049110-9 (Version None)
Quarter: 2006Q3

REPORT INFORMATION
  Report Type: 
  Country: None (occurrence: None)
  Receive Date: 20060706
  Receipt Date: 20060608
  Transmission Date: 20061208
  Serious: Yes (Other)
  Sender: FDA-Public Use
  Company Number: 2006080389

PATIENT
  Age: 19 Year
  Sex: Male

DRUGS (2)
  1. ATARAX [Suspect]
     Dosage: ORAL
     Route: 048
  2. ALCOHOL         (ETHANOL) [Suspect]

REACTIONS (5)
  - ALCOHOL USE [None]
  - INTENTIONAL DRUG MISUSE [None]
  - MULTIPLE DRUG OVERDOSE INTENTIONAL [None]
  - SUICIDE ATTEMPT [None]
  - VOMITING [None]
